FAERS Safety Report 9793169 (Version 1)
Quarter: 2014Q1

REPORT INFORMATION
  Report Type: Spontaneous
  Country: DE (occurrence: DE)
  Receive Date: 20140102
  Receipt Date: 20140102
  Transmission Date: 20141002
  Serious: Yes (Hospitalization)
  Sender: FDA-Public Use
  Company Number: DE-PFIZER INC-2013373416

PATIENT
  Sex: Male

DRUGS (2)
  1. SOBELIN [Suspect]
     Indication: STAPHYLOCOCCAL INFECTION
     Dosage: UNK
     Route: 042
  2. SOBELIN [Suspect]
     Dosage: UNK
     Route: 048

REACTIONS (2)
  - Infection [Unknown]
  - Encapsulation reaction [Unknown]
